FAERS Safety Report 8384290-9 (Version None)
Quarter: 2012Q2

REPORT INFORMATION
  Report Type: 
  Country: None (occurrence: None)
  Receive Date: 20120524
  Receipt Date: 20120509
  Transmission Date: 20120825
  Serious: Yes (Other)
  Sender: FDA-Public Use
  Company Number: US-ENDO PHARMACEUTICALS INC.-OPCR20120825

PATIENT
  Sex: Female

DRUGS (3)
  1. OPANA ER [Suspect]
     Indication: PAIN
     Dosage: 20 MG
     Route: 048
     Dates: start: 20120101, end: 20120101
  2. OPANA [Concomitant]
     Indication: PAIN
     Dosage: 10 MG
     Route: 048
  3. OPANA ER [Concomitant]
     Dosage: 20 MG
     Route: 048

REACTIONS (8)
  - ABDOMINAL PAIN UPPER [None]
  - PALPITATIONS [None]
  - HEADACHE [None]
  - FEELING ABNORMAL [None]
  - DRUG DISPENSING ERROR [None]
  - VOMITING [None]
  - BLINDNESS TRANSIENT [None]
  - DRUG EFFECT DELAYED [None]
